FAERS Safety Report 6726363-X (Version None)
Quarter: 2010Q2

REPORT INFORMATION
  Report Type: 
  Country: None (occurrence: None)
  Receive Date: 20100514
  Receipt Date: 20100511
  Transmission Date: 20101027
  Serious: Yes (Hospitalization)
  Sender: FDA-Public Use
  Company Number: A0858714A

PATIENT
  Sex: Male
  Weight: 52 kg

DRUGS (3)
  1. TOPOTECAN [Suspect]
     Dosage: 2.3MGM2 CYCLIC
     Route: 048
     Dates: start: 20100419
  2. TOPOTECAN [Suspect]
     Dosage: 1.1MGM2 PER DAY
     Route: 048
     Dates: start: 20100322, end: 20100402
  3. RADIATION [Suspect]
     Dosage: 3GY PER DAY
     Route: 061
     Dates: start: 20100322, end: 20100402

REACTIONS (1)
  - CHRONIC OBSTRUCTIVE PULMONARY DISEASE [None]
